FAERS Safety Report 23164466 (Version 2)
Quarter: 2023Q4

REPORT INFORMATION
  Report Type: Spontaneous
  Country: US (occurrence: US)
  Receive Date: 20231109
  Receipt Date: 20231120
  Transmission Date: 20240110
  Serious: Yes (Hospitalization, Other)
  Sender: FDA-Public Use
  Company Number: US-MYLANLABS-2023M1117882

PATIENT
  Age: 16 Year
  Sex: Female

DRUGS (1)
  1. LOPERAMIDE [Suspect]
     Active Substance: LOPERAMIDE
     Indication: Product used for unknown indication
     Dosage: HIGH DOSE (LARGE AMOUNT)
     Route: 065

REACTIONS (6)
  - Urinary retention [Recovering/Resolving]
  - Drug abuse [Recovering/Resolving]
  - Weight decreased [Recovered/Resolved]
  - Dizziness [Recovering/Resolving]
  - Syncope [Recovering/Resolving]
  - Constipation [Recovering/Resolving]
